FAERS Safety Report 18000422 (Version 1)
Quarter: 2020Q3

REPORT INFORMATION
  Report Type: Spontaneous
  Country: FR (occurrence: FR)
  Receive Date: 20200709
  Receipt Date: 20200709
  Transmission Date: 20201103
  Serious: Yes (Hospitalization, Other)
  Sender: FDA-Public Use
  Company Number: FR-PFIZER INC-2020260256

PATIENT
  Age: 17 Year
  Sex: Male

DRUGS (2)
  1. LYRICA [Suspect]
     Active Substance: PREGABALIN
     Dosage: 3 DF
     Route: 048
     Dates: start: 201906, end: 201906
  2. RIVOTRIL [Suspect]
     Active Substance: CLONAZEPAM
     Dosage: 8 MG
     Route: 048
     Dates: start: 201906, end: 201906

REACTIONS (2)
  - Drug abuser [Unknown]
  - Fall [Recovered/Resolved]

NARRATIVE: CASE EVENT DATE: 201906
